FAERS Safety Report 23179039 (Version 1)
Quarter: 2023Q4

REPORT INFORMATION
  Report Type: Spontaneous
  Country: IT (occurrence: IT)
  Receive Date: 20231113
  Receipt Date: 20231113
  Transmission Date: 20240110
  Serious: Yes (Hospitalization, Other)
  Sender: FDA-Public Use
  Company Number: IT-ELI_LILLY_AND_COMPANY-IT202310012055

PATIENT
  Age: 54 Year
  Weight: 70 kg

DRUGS (2)
  1. PEMETREXED [Suspect]
     Active Substance: PEMETREXED
     Indication: Pleural mesothelioma
     Dosage: UNK, CYCLIC
     Dates: start: 20220311, end: 20220715
  2. CARBOPLATIN [Concomitant]
     Active Substance: CARBOPLATIN
     Indication: Pleural mesothelioma
     Dosage: UNK, CYCLICAL
     Dates: start: 20220311, end: 20220715

REACTIONS (6)
  - Hyperpyrexia [Unknown]
  - Restrictive pulmonary disease [Unknown]
  - Respiratory failure [Unknown]
  - Pulmonary hypertension [Unknown]
  - Neoplasm progression [Unknown]
  - Pleural effusion [Unknown]

NARRATIVE: CASE EVENT DATE: 20220601
